FAERS Safety Report 24058510 (Version 3)
Quarter: 2024Q3

REPORT INFORMATION
  Report Type: Spontaneous
  Country: CA (occurrence: CA)
  Receive Date: 20240708
  Receipt Date: 20240905
  Transmission Date: 20241016
  Serious: Yes (Other)
  Sender: CELLTRION
  Company Number: CA-PFIZER INC-202400056699

PATIENT

DRUGS (8)
  1. INFLECTRA [Suspect]
     Active Substance: INFLIXIMAB-DYYB
     Indication: Colitis ulcerative
     Dosage: 1 DF, UNKNOWN DOSE WEEK 0 AT THE HOSPITAL
     Route: 042
     Dates: start: 20240125, end: 20240125
  2. INFLECTRA [Suspect]
     Active Substance: INFLIXIMAB-DYYB
     Dosage: 10 MG/KG, W 2, 6 WEEKS THEN EVERY 8 WEEKS
     Route: 042
     Dates: start: 20240207
  3. INFLECTRA [Suspect]
     Active Substance: INFLIXIMAB-DYYB
     Dosage: 690 MG, 3 WEEKS AND 5 DAYS, (WEEK6 INDUCTION)
     Route: 042
     Dates: start: 20240304, end: 20240304
  4. INFLECTRA [Suspect]
     Active Substance: INFLIXIMAB-DYYB
     Dosage: 5 MG/KG Q 8 WEEKS
     Route: 042
     Dates: start: 20240429
  5. INFLECTRA [Suspect]
     Active Substance: INFLIXIMAB-DYYB
     Dosage: 345 MG, AFTER 8 WEEKS
     Route: 042
     Dates: start: 20240627, end: 20240627
  6. ATIVAN [Concomitant]
     Active Substance: LORAZEPAM
     Indication: Schizoid personality disorder
  7. DESYREL [Concomitant]
     Active Substance: TRAZODONE HYDROCHLORIDE
     Dosage: AS NEEDED
  8. HALDOL [Concomitant]
     Active Substance: HALOPERIDOL
     Indication: Schizoid personality disorder
     Dosage: AS NEEDED

REACTIONS (9)
  - Thrombophlebitis [Not Recovered/Not Resolved]
  - Condition aggravated [Not Recovered/Not Resolved]
  - Movement disorder [Unknown]
  - Gait disturbance [Unknown]
  - Incontinence [Unknown]
  - Catheter site pain [Recovering/Resolving]
  - Peripheral coldness [Recovering/Resolving]
  - Skin oedema [Not Recovered/Not Resolved]
  - Infusion site extravasation [Unknown]

NARRATIVE: CASE EVENT DATE: 20240304
